FAERS Safety Report 23720233 (Version 2)
Quarter: 2024Q2

REPORT INFORMATION
  Report Type: Spontaneous
  Country: JP (occurrence: None)
  Receive Date: 20240408
  Receipt Date: 20240513
  Transmission Date: 20240716
  Serious: Yes (Death, Hospitalization, Other)
  Sender: FDA-Public Use
  Company Number: 2024A082423

PATIENT
  Age: 76 Year
  Sex: Female
  Weight: 65 kg

DRUGS (6)
  1. IMFINZI [Suspect]
     Active Substance: DURVALUMAB
     Indication: Hepatocellular carcinoma
     Route: 041
     Dates: start: 20240226, end: 20240226
  2. IMJUDO [Suspect]
     Active Substance: TREMELIMUMAB\TREMELIMUMAB-ACTL
     Indication: Hepatocellular carcinoma
     Route: 041
     Dates: start: 20240226, end: 20240226
  3. BROTIZOLAM [Concomitant]
     Active Substance: BROTIZOLAM
     Dosage: BEFORE BEDTIME, TAKING FOR SEVERAL YEARS
     Route: 048
  4. FAMOTIDINE [Concomitant]
     Active Substance: FAMOTIDINE
     Dosage: AFTER BREAKFAST AND DINNER, TAKING MORE THAN 1 YEAR
     Route: 048
  5. FUROSEMIDE [Concomitant]
     Active Substance: FUROSEMIDE
     Dosage: AFTER BREAKFAST, TAKEN 7 DAYS BEFORE
     Route: 048
  6. SPIRONOLACTONE [Concomitant]
     Active Substance: SPIRONOLACTONE
     Dosage: AFTER BREAKFAST, TAKEN 7 DAYS BEFORE
     Route: 048

REACTIONS (5)
  - Immune-mediated myositis [Fatal]
  - Rhabdomyolysis [Fatal]
  - Respiratory failure [Fatal]
  - Oedema peripheral [Unknown]
  - Pleural effusion [Unknown]

NARRATIVE: CASE EVENT DATE: 20240101
